FAERS Safety Report 6932064-5 (Version None)
Quarter: 2010Q3

REPORT INFORMATION
  Report Type: 
  Country: None (occurrence: None)
  Receive Date: 20100819
  Receipt Date: 20100806
  Transmission Date: 20110219
  Serious: Yes (Hospitalization)
  Sender: FDA-Public Use
  Company Number: A0773188A

PATIENT
  Age: 55 Year
  Sex: Female
  Weight: 105.5 kg

DRUGS (10)
  1. AVANDIA [Suspect]
     Indication: DIABETES MELLITUS
     Dosage: 4MG TWICE PER DAY
     Route: 048
     Dates: start: 20010501, end: 20070701
  2. STARLIX [Concomitant]
  3. INSULIN [Concomitant]
  4. ATENOLOL [Concomitant]
  5. COREG [Concomitant]
  6. METOPROLOL [Concomitant]
  7. BEXTRA [Concomitant]
  8. SIMVASTATIN [Concomitant]
  9. AMITRIPTYLINE HYDROCHLORIDE [Concomitant]
  10. PROTONIX [Concomitant]

REACTIONS (2)
  - MYOCARDIAL INFARCTION [None]
  - TIBIA FRACTURE [None]
